FAERS Safety Report 6348373-7 (Version None)
Quarter: 2009Q3

REPORT INFORMATION
  Report Type: 
  Country: None (occurrence: None)
  Receive Date: 20090908
  Receipt Date: 20090825
  Transmission Date: 20100115
  Serious: Yes (Other)
  Sender: FDA-Public Use
  Company Number: 2009AL002541

PATIENT
  Sex: Female

DRUGS (12)
  1. DIGOXIN [Suspect]
     Dosage: UNKNOWN, UNK, PO
     Route: 048
     Dates: start: 20020101
  2. ACETAMINOPHEN [Concomitant]
  3. NITROGLYCERIN [Concomitant]
  4. FUROSEMIDE [Concomitant]
  5. CAPTOPRIL [Concomitant]
  6. PREMARIN [Concomitant]
  7. POTASSIUM CL [Concomitant]
  8. LOVASTATIN [Concomitant]
  9. GEMFIBROZIL [Concomitant]
  10. ACIPHEX [Concomitant]
  11. KLOR-CON [Concomitant]
  12. NITROLINGUAL [Concomitant]

REACTIONS (4)
  - ECONOMIC PROBLEM [None]
  - EMOTIONAL DISORDER [None]
  - INJURY [None]
  - SURGERY [None]
